FAERS Safety Report 11303500 (Version 1)
Quarter: 2015Q3

REPORT INFORMATION
  Report Type: Spontaneous
  Country: US (occurrence: US)
  Receive Date: 20150723
  Receipt Date: 20150723
  Transmission Date: 20151125
  Serious: No
  Sender: FDA-Public Use
  Company Number: US-JNJFOC-20141201437

PATIENT
  Age: 67 Year
  Sex: Female
  Weight: 63.05 kg

DRUGS (3)
  1. ZYRTEC [Suspect]
     Active Substance: CETIRIZINE HYDROCHLORIDE
     Route: 048
  2. ZYRTEC [Suspect]
     Active Substance: CETIRIZINE HYDROCHLORIDE
     Indication: SINUS DISORDER
     Dosage: 1 TABLET AS NEEDED
     Route: 048
  3. SUDAFED CONGESTION [Concomitant]
     Indication: SINUS DISORDER
     Route: 065

REACTIONS (2)
  - Dry mouth [Recovered/Resolved]
  - Intentional product use issue [Unknown]
